FAERS Safety Report 21388072 (Version 1)
Quarter: 2022Q3

REPORT INFORMATION
  Report Type: Spontaneous
  Country: US (occurrence: US)
  Receive Date: 20220928
  Receipt Date: 20220928
  Transmission Date: 20221027
  Serious: No
  Sender: FDA-Public Use
  Company Number: US-SA-SAC20220923000534

PATIENT
  Age: 55 Year
  Sex: Male

DRUGS (1)
  1. DUPIXENT [Suspect]
     Active Substance: DUPILUMAB
     Indication: Eosinophilic oesophagitis
     Dosage: 300 MG, QW
     Route: 058
     Dates: start: 20220830

REACTIONS (8)
  - Injection site irritation [Unknown]
  - Abdominal pain upper [Unknown]
  - Cough [Unknown]
  - Decreased appetite [Unknown]
  - Hot flush [Unknown]
  - Dyspnoea [Unknown]
  - Urticaria [Unknown]
  - Arthralgia [Unknown]
